FAERS Safety Report 22098513 (Version 1)
Quarter: 2023Q1

REPORT INFORMATION
  Report Type: Spontaneous
  Country: US (occurrence: None)
  Receive Date: 20230314
  Receipt Date: 20230314
  Transmission Date: 20230417
  Serious: Yes (unspecified)
  Sender: FDA-Public Use
  Company Number: None

PATIENT
  Age: 65 Year
  Sex: Female
  Weight: 65.25 kg

DRUGS (22)
  1. RISEDRONATE SODIUM [Suspect]
     Active Substance: RISEDRONATE SODIUM
     Indication: Osteopenia
     Dosage: 1 CAPSULE 1 RIME A MONTH ORAL
     Route: 048
     Dates: start: 20230311, end: 20230311
  2. RISEDRONATE SODIUM [Concomitant]
     Active Substance: RISEDRONATE SODIUM
  3. HYDRALAZINE [Concomitant]
     Active Substance: HYDRALAZINE HYDROCHLORIDE
  4. AMLODIPINE [Concomitant]
     Active Substance: AMLODIPINE BESYLATE
  5. LOSARTAN [Concomitant]
     Active Substance: LOSARTAN
  6. UNSPECIFIED INGREDIENT [Concomitant]
     Active Substance: UNSPECIFIED INGREDIENT
  7. METOPROLOL TARTRATE [Concomitant]
  8. FENOFIBRATE [Concomitant]
     Active Substance: FENOFIBRATE
  9. ATORVASTATIN [Concomitant]
     Active Substance: ATORVASTATIN
  10. LEVOTHYROXINE [Concomitant]
     Active Substance: LEVOTHYROXINE
  11. ESCITALOPRAM [Concomitant]
     Active Substance: ESCITALOPRAM OXALATE
  12. CAPLYTA [Concomitant]
     Active Substance: LUMATEPERONE
  13. TRAZODONE [Concomitant]
     Active Substance: TRAZODONE HYDROCHLORIDE
  14. PREGABALIN [Concomitant]
     Active Substance: PREGABALIN
  15. BACLOFEN [Concomitant]
     Active Substance: BACLOFEN
  16. HYDROCODONE [Concomitant]
     Active Substance: HYDROCODONE
  17. ACETAMINOPHEN [Concomitant]
     Active Substance: ACETAMINOPHEN
  18. FAMOTIDINE [Concomitant]
     Active Substance: FAMOTIDINE
  19. CAFFEINE [Concomitant]
     Active Substance: CAFFEINE
  20. POTASSIUM [Concomitant]
     Active Substance: POTASSIUM
  21. ACETAMINOPHEN [Concomitant]
     Active Substance: ACETAMINOPHEN
  22. IBUPROFEN [Concomitant]
     Active Substance: IBUPROFEN

REACTIONS (13)
  - Malaise [None]
  - Musculoskeletal chest pain [None]
  - Pain [None]
  - Chest discomfort [None]
  - Dyspnoea [None]
  - Fatigue [None]
  - Chills [None]
  - Nasopharyngitis [None]
  - Tremor [None]
  - Seizure [None]
  - Abdominal discomfort [None]
  - Diarrhoea [None]
  - Anal incontinence [None]

NARRATIVE: CASE EVENT DATE: 20230311
